FAERS Safety Report 14755688 (Version 16)
Quarter: 2019Q3

REPORT INFORMATION
  Report Type: Report from Study
  Country: GB (occurrence: GB)
  Receive Date: 20180413
  Receipt Date: 20190912
  Transmission Date: 20191004
  Serious: Yes (Death, Hospitalization, Other)
  Sender: FDA-Public Use
  Company Number: GB-BRISTOL-MYERS SQUIBB COMPANY-BMS-2018-032945

PATIENT
  Age: 68 Year
  Sex: Female
  Weight: 79.9 kg

DRUGS (8)
  1. METHYLPREDNISOLONE. [Concomitant]
     Active Substance: METHYLPREDNISOLONE
     Indication: PRODUCT USED FOR UNKNOWN INDICATION
     Dosage: UNK
     Route: 042
     Dates: start: 20190406, end: 20190406
  2. PREDNISOLONE. [Concomitant]
     Active Substance: PREDNISOLONE
     Indication: PROPHYLAXIS
     Dosage: 20 MILLIGRAM, QD
     Route: 048
     Dates: start: 20180426, end: 20180428
  3. NIVOLUMAB [Suspect]
     Active Substance: NIVOLUMAB
     Indication: MALIGNANT MELANOMA
     Dosage: 1 DOSAGE FORM, Q3WK
     Route: 065
     Dates: start: 20180125, end: 20190626
  4. MYCOPHENOLATE MOFETIL. [Concomitant]
     Active Substance: MYCOPHENOLATE MOFETIL
     Indication: PRODUCT USED FOR UNKNOWN INDICATION
     Dosage: UNK
     Route: 042
     Dates: start: 20180408, end: 20180509
  5. METHYLPREDNISOLONE SODIUM SUCCINATE. [Concomitant]
     Active Substance: METHYLPREDNISOLONE SODIUM SUCCINATE
     Indication: PRODUCT USED FOR UNKNOWN INDICATION
     Dosage: 500 MILLIGRAM, QD
     Route: 042
     Dates: start: 20180407, end: 20190421
  6. IPILIMUMAB [Suspect]
     Active Substance: IPILIMUMAB
     Indication: MALIGNANT MELANOMA
     Dosage: 1 DOSAGE FORM, Q3WK
     Route: 065
     Dates: start: 20180125, end: 20190626
  7. METANIUM [TITANIUM DIOXIDE;TITANIUM PEROXIDE;TITANIUM SALICYLATE;TITAN [Concomitant]
     Indication: PRODUCT USED FOR UNKNOWN INDICATION
     Dosage: 1 DOSAGE FORM, PER NEEDED
     Route: 061
     Dates: start: 20180419
  8. HYDROCORTISONE. [Concomitant]
     Active Substance: HYDROCORTISONE
     Indication: PROPHYLAXIS
     Dosage: 30 MILLIGRAM, QD
     Route: 042
     Dates: start: 20190429, end: 20190430

REACTIONS (8)
  - Malignant neoplasm progression [Fatal]
  - Systemic inflammatory response syndrome [Recovered/Resolved]
  - Decreased appetite [Recovered/Resolved]
  - Rash [Unknown]
  - Headache [Unknown]
  - Alanine aminotransferase increased [Recovered/Resolved]
  - Aspartate aminotransferase increased [Unknown]
  - Brain oedema [Unknown]

NARRATIVE: CASE EVENT DATE: 20180329
